FAERS Safety Report 4722001-6 (Version None)
Quarter: 2005Q3

REPORT INFORMATION
  Report Type: 
  Country: None (occurrence: None)
  Receive Date: 20050722
  Receipt Date: 20050701
  Transmission Date: 20060218
  Serious: Yes (Hospitalization, Other)
  Sender: FDA-Public Use
  Company Number: US-ABBOTT-05P-163-0305209-00

PATIENT
  Sex: Female
  Weight: 70.37 kg

DRUGS (16)
  1. HUMIRA [Suspect]
     Indication: RHEUMATOID ARTHRITIS
     Route: 058
     Dates: start: 20050114, end: 20050407
  2. BENAZEPRIL HYDROCHLORIDE [Concomitant]
     Indication: HYPERTENSION
     Dates: start: 20040901, end: 20050315
  3. BENAZEPRIL HYDROCHLORIDE [Concomitant]
     Dates: start: 20040901
  4. DILTIAZEM [Concomitant]
     Indication: HYPERTENSION
     Dates: start: 20050316
  5. DILTIAZEM [Concomitant]
     Dates: start: 20040101, end: 20050315
  6. METHOTREXATE [Concomitant]
     Indication: RHEUMATOID ARTHRITIS
     Dates: start: 20020805
  7. FOLIC ACID [Concomitant]
     Indication: VITAMIN SUPPLEMENTATION
     Dates: start: 20020101
  8. CELCIMAX [Concomitant]
     Indication: RHEUMATOID ARTHRITIS
     Dates: start: 20041105
  9. PREDNISONE [Concomitant]
     Indication: RHEUMATOID ARTHRITIS
     Dates: start: 20021105
  10. DARVOCET-N 100 [Concomitant]
     Indication: ARTHRALGIA
     Dates: start: 20020426
  11. ESTROGENS CONJUGATED [Concomitant]
     Indication: HORMONE REPLACEMENT THERAPY
     Dates: start: 19700101
  12. DILTIAZEM HCL [Concomitant]
     Indication: HYPERTENSION
     Dates: start: 20041101
  13. DYAZIDE [Concomitant]
     Indication: HYPERTENSION
     Dosage: 25-37.5MG
     Dates: start: 20000101
  14. LANSOPRAZOLE [Concomitant]
     Indication: BARRETT'S OESOPHAGUS
     Dates: start: 20000101
  15. OXYBUTYNIN [Concomitant]
     Indication: INCONTINENCE
     Dates: start: 20020101
  16. CALCIUM CARBONATE [Concomitant]
     Indication: MINERAL SUPPLEMENTATION
     Dates: start: 20030101

REACTIONS (2)
  - ATRIOVENTRICULAR BLOCK SECOND DEGREE [None]
  - CHEST PAIN [None]
